FAERS Safety Report 7998049-5 (Version None)
Quarter: 2011Q4

REPORT INFORMATION
  Report Type: 
  Country: None (occurrence: None)
  Receive Date: 20111221
  Receipt Date: 20101207
  Transmission Date: 20120403
  Serious: No
  Sender: FDA-Public Use
  Company Number: US-GLAXOSMITHKLINE-A0899360A

PATIENT
  Sex: Male

DRUGS (1)
  1. LOVAZA [Suspect]
     Indication: BLOOD TRIGLYCERIDES
     Route: 065
     Dates: start: 20101101

REACTIONS (2)
  - THERAPEUTIC RESPONSE UNEXPECTED [None]
  - DRUG INEFFECTIVE [None]
